FAERS Safety Report 18755226 (Version 1)
Quarter: 2021Q1

REPORT INFORMATION
  Report Type: Spontaneous
  Country: IT (occurrence: IT)
  Receive Date: 20210119
  Receipt Date: 20210119
  Transmission Date: 20210419
  Serious: Yes (Hospitalization)
  Sender: FDA-Public Use
  Company Number: NVSC2021IT009021

PATIENT
  Age: 90 Year
  Sex: Male

DRUGS (1)
  1. DONEPEZIL. [Suspect]
     Active Substance: DONEPEZIL
     Indication: DEMENTIA
     Dosage: 1 DF,QD
     Route: 048
     Dates: end: 20201223

REACTIONS (1)
  - Defect conduction intraventricular [Recovering/Resolving]

NARRATIVE: CASE EVENT DATE: 20201222
